FAERS Safety Report 4789871-7 (Version None)
Quarter: 2005Q3

REPORT INFORMATION
  Report Type: 
  Country: None (occurrence: None)
  Receive Date: 20050914
  Receipt Date: 20041217
  Transmission Date: 20060218
  Serious: Yes (Other)
  Sender: FDA-Public Use
  Company Number: 163-20785-04120514

PATIENT
  Age: 74 Year
  Sex: Male

DRUGS (3)
  1. THALOMID [Suspect]
     Indication: PULMONARY FIBROSIS
     Dosage: 400 MG, DAILY, ORAL; 50 MG, DAILY, ORAL (SEE IMAGE)
     Route: 048
     Dates: start: 20031030, end: 20040301
  2. THALOMID [Suspect]
     Indication: PULMONARY FIBROSIS
     Dosage: 400 MG, DAILY, ORAL; 50 MG, DAILY, ORAL (SEE IMAGE)
     Route: 048
  3. COUMADIN [Concomitant]

REACTIONS (2)
  - ATRIAL FIBRILLATION [None]
  - CONDITION AGGRAVATED [None]
